FAERS Safety Report 16711449 (Version 1)
Quarter: 2019Q3

REPORT INFORMATION
  Report Type: Spontaneous
  Country: US (occurrence: US)
  Receive Date: 20190816
  Receipt Date: 20190816
  Transmission Date: 20191004
  Serious: No
  Sender: FDA-Public Use
  Company Number: US-ASTRAZENECA-2019SF05037

PATIENT
  Sex: Female

DRUGS (1)
  1. SYMBICORT [Suspect]
     Active Substance: BUDESONIDE\FORMOTEROL FUMARATE DIHYDRATE
     Dosage: TWO TIMES A DAY
     Route: 055

REACTIONS (8)
  - Infection [Unknown]
  - Swollen tongue [Unknown]
  - Glossitis [Unknown]
  - Dysphonia [Unknown]
  - Secretion discharge [Unknown]
  - Oral pain [Unknown]
  - Cough [Unknown]
  - Glossodynia [Unknown]
